FAERS Safety Report 7125743-0 (Version None)
Quarter: 2010Q4

REPORT INFORMATION
  Report Type: 
  Country: None (occurrence: None)
  Receive Date: 20101129
  Receipt Date: 20101119
  Transmission Date: 20110411
  Serious: Yes (Hospitalization)
  Sender: FDA-Public Use
  Company Number: B0680488A

PATIENT
  Age: 54 Year
  Sex: Male

DRUGS (18)
  1. MARAVIROC [Suspect]
     Indication: HIV INFECTION
     Dosage: 600MG TWICE PER DAY
     Dates: start: 20100824
  2. AMITRIPTYLINE [Concomitant]
     Dates: start: 20100824
  3. OMEPRAZOLE [Concomitant]
     Dates: start: 20100811
  4. DULOXETINE [Concomitant]
     Dates: start: 20100615
  5. ALBUTEROL [Concomitant]
     Dates: start: 20100513
  6. HYDROCODONE BITARTRATE + ACETAMINOPHEN [Concomitant]
     Dates: start: 20100513
  7. IBUPROFEN [Concomitant]
     Dates: start: 20100223
  8. MOMETASONE FUROATE [Concomitant]
     Dates: start: 20100223
  9. PROCHLORPERAZINE [Concomitant]
     Dates: start: 20100223
  10. RANITIDINE [Concomitant]
     Dates: start: 20100223
  11. AMLODIPINE [Concomitant]
     Dates: start: 20091207
  12. DIPHENOXYLATE HCL + ATROPINE SULFATE [Concomitant]
     Dates: start: 20091207
  13. DRONABINOL [Concomitant]
     Dates: start: 20091207
  14. SUMATRIPTAN SUCCINATE [Concomitant]
     Dates: start: 20091207
  15. ZOLPIDEM [Concomitant]
     Dates: start: 20091207
  16. INTELENCE [Concomitant]
     Dosage: 400MG PER DAY
     Dates: start: 20091207
  17. TRUVADA [Concomitant]
     Dosage: 1TAB PER DAY
     Dates: start: 20091207
  18. ETRAVIRINE [Concomitant]
     Dates: start: 20091207

REACTIONS (1)
  - LYMPHOMA [None]
